FAERS Safety Report 7884257-0 (Version None)
Quarter: 2011Q4

REPORT INFORMATION
  Report Type: 
  Country: None (occurrence: None)
  Receive Date: 20111102
  Receipt Date: 20111027
  Transmission Date: 20120403
  Serious: No
  Sender: FDA-Public Use
  Company Number: US-PFIZER INC-2011263203

PATIENT
  Sex: Male
  Weight: 26.3 kg

DRUGS (2)
  1. GENOTROPIN [Suspect]
     Dosage: 0.6 MG, UNK
     Dates: start: 20100122
  2. GENOTROPIN [Suspect]
     Dosage: UNK
     Dates: start: 20111024

REACTIONS (2)
  - INJECTION SITE HAEMORRHAGE [None]
  - INJECTION SITE PAIN [None]
